FAERS Safety Report 25637001 (Version 1)
Quarter: 2025Q3

REPORT INFORMATION
  Report Type: Spontaneous
  Country: CN (occurrence: CN)
  Receive Date: 20250804
  Receipt Date: 20250804
  Transmission Date: 20251020
  Serious: Yes (Other)
  Sender: JIANGSU HENGRUI
  Company Number: CN-JIANGSU HENGRUI PHARMACEUTICALS CO., LTD.-H2025225832

PATIENT
  Age: 74 Year
  Weight: 45 kg

DRUGS (2)
  1. IODIXANOL [Suspect]
     Active Substance: IODIXANOL
     Indication: Computerised tomogram thorax
  2. IODIXANOL [Suspect]
     Active Substance: IODIXANOL
     Indication: Computerised tomogram heart

REACTIONS (1)
  - Epilepsy [Recovering/Resolving]
